FAERS Safety Report 7108855-7 (Version None)
Quarter: 2010Q4

REPORT INFORMATION
  Report Type: 
  Country: None (occurrence: None)
  Receive Date: 20101104
  Receipt Date: 20101026
  Transmission Date: 20110411
  Serious: Yes (Hospitalization)
  Sender: FDA-Public Use
  Company Number: 2010SP057342

PATIENT
  Age: 39 Year
  Sex: Female

DRUGS (2)
  1. MIRTAZAPINE [Suspect]
     Indication: PRODUCT USED FOR UNKNOWN INDICATION
     Dosage: 120 MG; ONCE; PO
     Route: 048
  2. DEPAKENE [Suspect]
     Indication: PRODUCT USED FOR UNKNOWN INDICATION
     Dosage: 1800 MG; ONCE; PO
     Route: 048

REACTIONS (2)
  - OVERDOSE [None]
  - SUICIDE ATTEMPT [None]
